FAERS Safety Report 8188441-0 (Version None)
Quarter: 2012Q1

REPORT INFORMATION
  Report Type: 
  Country: None (occurrence: None)
  Receive Date: 20120306
  Receipt Date: 20120228
  Transmission Date: 20120608
  Serious: Yes (Other)
  Sender: FDA-Public Use
  Company Number: PHEH2011US06788

PATIENT
  Sex: Female

DRUGS (7)
  1. HYDREA [Concomitant]
  2. PERCOCET [Concomitant]
  3. COUMADIN [Concomitant]
  4. LEXAPRO [Concomitant]
  5. NORCO [Concomitant]
  6. EXJADE [Suspect]
     Indication: IRON OVERLOAD
     Dosage: 500 MG, DAILY
     Route: 048
     Dates: start: 20070101
  7. FOLIC ACID [Concomitant]

REACTIONS (6)
  - NAUSEA [None]
  - DIARRHOEA [None]
  - PRURITUS [None]
  - GASTROOESOPHAGEAL REFLUX DISEASE [None]
  - HAEMOGLOBIN DECREASED [None]
  - DYSPNOEA [None]
